FAERS Safety Report 19015164 (Version 1)
Quarter: 2021Q1

REPORT INFORMATION
  Report Type: Spontaneous
  Country: US (occurrence: US)
  Receive Date: 20210317
  Receipt Date: 20210317
  Transmission Date: 20210420
  Serious: No
  Sender: FDA-Public Use
  Company Number: US-BAUSCH-BL-2021-005378

PATIENT
  Age: 63 Year
  Sex: Male

DRUGS (4)
  1. VENLAFAXINE HYDROCHLORIDE EXTENDED?RELEASE [Suspect]
     Active Substance: VENLAFAXINE HYDROCHLORIDE
     Dosage: DOSE REDUCED
     Route: 048
     Dates: start: 2012, end: 2012
  2. VENLAFAXINE HYDROCHLORIDE EXTENDED?RELEASE [Suspect]
     Active Substance: VENLAFAXINE HYDROCHLORIDE
     Indication: PRODUCT USE IN UNAPPROVED INDICATION
     Dosage: DOSE INCREASED
     Route: 048
     Dates: start: 2012, end: 2012
  3. VENLAFAXINE HYDROCHLORIDE EXTENDED?RELEASE [Suspect]
     Active Substance: VENLAFAXINE HYDROCHLORIDE
     Indication: BACK PAIN
     Route: 048
     Dates: start: 2012, end: 2012
  4. LIPITOR [Concomitant]
     Active Substance: ATORVASTATIN CALCIUM
     Indication: HYPERLIPIDAEMIA

REACTIONS (4)
  - Ejaculation failure [Recovered/Resolved]
  - Dysuria [Recovered/Resolved]
  - Anorgasmia [Recovered/Resolved]
  - Product use in unapproved indication [Unknown]

NARRATIVE: CASE EVENT DATE: 2012
